FAERS Safety Report 9418088 (Version 1)
Quarter: 2013Q3

REPORT INFORMATION
  Report Type: Spontaneous
  Country: US (occurrence: US)
  Receive Date: 20130724
  Receipt Date: 20130724
  Transmission Date: 20140515
  Serious: Yes (Other)
  Sender: FDA-Public Use
  Company Number: US-ASTRAZENECA-2013SE55339

PATIENT
  Age: 3 Year
  Sex: Female
  Weight: 14.1 kg

DRUGS (1)
  1. ATENOLOL [Suspect]
     Indication: SUPRAVENTRICULAR TACHYCARDIA
     Dosage: GENERIC, 3ML/DAY
     Route: 048

REACTIONS (5)
  - Tooth disorder [Unknown]
  - Dental caries [Unknown]
  - Off label use [Unknown]
  - Off label use [Unknown]
  - Off label use [Unknown]
